FAERS Safety Report 23957916 (Version 2)
Quarter: 2025Q3

REPORT INFORMATION
  Report Type: Spontaneous
  Country: US (occurrence: US)
  Receive Date: 20240610
  Receipt Date: 20250902
  Transmission Date: 20251021
  Serious: No
  Sender: PFIZER
  Company Number: US-PFIZER INC-202400190081

PATIENT
  Age: 66 Year
  Sex: Female

DRUGS (9)
  1. METHOTREXATE SODIUM [Suspect]
     Active Substance: METHOTREXATE SODIUM
  2. VITAMIN B2 [Concomitant]
     Active Substance: RIBOFLAVIN
  3. METHYLPREDNISOLONE [Concomitant]
     Active Substance: METHYLPREDNISOLONE
  4. ANASTROZOLE [Concomitant]
     Active Substance: ANASTROZOLE
  5. JARDIANCE [Concomitant]
     Active Substance: EMPAGLIFLOZIN
  6. METOPROLOL [Concomitant]
     Active Substance: METOPROLOL
  7. LASIX [Concomitant]
     Active Substance: FUROSEMIDE
  8. METFORMIN [Concomitant]
     Active Substance: METFORMIN HYDROCHLORIDE
  9. PANTOPRAZOLE [Concomitant]
     Active Substance: PANTOPRAZOLE

REACTIONS (2)
  - Drug hypersensitivity [Unknown]
  - Rash [Unknown]
